FAERS Safety Report 9540711 (Version 1)
Quarter: 2013Q3

REPORT INFORMATION
  Report Type: Spontaneous
  Country: US (occurrence: US)
  Receive Date: 20130920
  Receipt Date: 20130920
  Transmission Date: 20140515
  Serious: Yes (Disabling)
  Sender: FDA-Public Use
  Company Number: US-009507513-1309USA007323

PATIENT
  Sex: Female

DRUGS (10)
  1. FOSAMAX [Suspect]
     Dosage: UNK
     Route: 048
  2. PREDNISONE [Suspect]
     Dosage: UNK
     Route: 048
  3. FLUDROCORTISONE [Concomitant]
  4. LIPITOR [Concomitant]
  5. ATENOLOL [Concomitant]
  6. VITAMIN B (UNSPECIFIED) [Concomitant]
  7. CALCIUM (UNSPECIFIED) [Concomitant]
  8. SELENIUM (UNSPECIFIED) [Concomitant]
  9. COMPRO [Concomitant]
  10. VITAMINS (UNSPECIFIED) [Concomitant]

REACTIONS (8)
  - Activities of daily living impaired [Not Recovered/Not Resolved]
  - Wrist fracture [Not Recovered/Not Resolved]
  - Spinal compression fracture [Not Recovered/Not Resolved]
  - Thoracic vertebral fracture [Not Recovered/Not Resolved]
  - Abasia [Not Recovered/Not Resolved]
  - Multiple fractures [Not Recovered/Not Resolved]
  - Personality change [Not Recovered/Not Resolved]
  - Nervousness [Not Recovered/Not Resolved]
